FAERS Safety Report 7962010-7 (Version None)
Quarter: 2011Q4

REPORT INFORMATION
  Report Type: 
  Country: None (occurrence: None)
  Receive Date: 20111207
  Receipt Date: 20111125
  Transmission Date: 20120403
  Serious: Yes (Other)
  Sender: FDA-Public Use
  Company Number: BR-ROCHE-720494

PATIENT
  Sex: Female
  Weight: 62 kg

DRUGS (12)
  1. MELOXICAM [Concomitant]
  2. CLONAZEPAM [Concomitant]
  3. TOFRANIL [Concomitant]
  4. MABTHERA [Suspect]
     Indication: RHEUMATOID ARTHRITIS
     Dosage: DOSE: 500 MG/ 50 ML; FORM: INFUSION
     Route: 042
     Dates: start: 20101001, end: 20101015
  5. NAPROXEN [Concomitant]
  6. OS-CAL [Concomitant]
     Indication: OSTEOPENIA
  7. OMEPRAZOLE [Concomitant]
  8. CYMBALTA [Concomitant]
  9. ACTEMRA [Suspect]
     Indication: RHEUMATOID ARTHRITIS
     Dosage: ROUTE: ENDOVENOUS
     Route: 042
     Dates: start: 20100706, end: 20100701
  10. METHOTREXATE [Concomitant]
  11. METHOTREXATE [Concomitant]
  12. DEFLAZACORT [Concomitant]

REACTIONS (26)
  - ANAEMIA [None]
  - HEADACHE [None]
  - PROCEDURAL PAIN [None]
  - INFLAMMATION [None]
  - INFLUENZA [None]
  - LABYRINTHITIS [None]
  - CATARACT [None]
  - BLOOD TRIGLYCERIDES INCREASED [None]
  - WEIGHT DECREASED [None]
  - HYPERTENSION [None]
  - CARPAL TUNNEL SYNDROME [None]
  - BLOOD CHOLESTEROL INCREASED [None]
  - UPPER EXTREMITY MASS [None]
  - DRUG INEFFECTIVE [None]
  - THERAPEUTIC RESPONSE DECREASED [None]
  - ULCER [None]
  - SKIN DISCOLOURATION [None]
  - EPISTAXIS [None]
  - SINUSITIS [None]
  - FEELING HOT [None]
  - PAIN IN EXTREMITY [None]
  - TENDONITIS [None]
  - SOMNOLENCE [None]
  - URINARY TRACT INFECTION [None]
  - RENAL COLIC [None]
  - NASOPHARYNGITIS [None]
